FAERS Safety Report 18959480 (Version 3)
Quarter: 2021Q2

REPORT INFORMATION
  Report Type: Report from Study
  Country: US (occurrence: US)
  Receive Date: 20210302
  Receipt Date: 20210517
  Transmission Date: 20210717
  Serious: Yes (Other)
  Sender: FDA-Public Use
  Company Number: US-ASTELLAS-2018US048861

PATIENT
  Age: 81 Year
  Sex: Male

DRUGS (14)
  1. GLUCOPHAGE [Concomitant]
     Active Substance: METFORMIN HYDROCHLORIDE
     Indication: TYPE 2 DIABETES MELLITUS
     Dosage: 500 MG, TWICE DAILY AFTER BREAKFAST AND DINNER
     Route: 065
  2. PRILOSEC [Concomitant]
     Active Substance: OMEPRAZOLE MAGNESIUM
     Indication: GASTROOESOPHAGEAL REFLUX DISEASE
     Dosage: 40 MG, ONCE DAILY BEFORE BREAKFAST
     Route: 065
  3. ENZALUTAMIDE [Suspect]
     Active Substance: ENZALUTAMIDE
     Route: 048
     Dates: start: 20210225
  4. LUPRON DEPOT [Concomitant]
     Active Substance: LEUPROLIDE ACETATE
     Indication: PRODUCT USED FOR UNKNOWN INDICATION
     Dosage: 11.25 MG, 3 MONTHS
     Route: 065
  5. ENZALUTAMIDE [Suspect]
     Active Substance: ENZALUTAMIDE
     Indication: PROSTATE CANCER
     Route: 048
     Dates: start: 20180326, end: 20210220
  6. CITRACAL + D3 [Concomitant]
     Indication: PRODUCT USED FOR UNKNOWN INDICATION
     Dosage: 2 DF, ONCE DAILY AFTER BREAKFAST
     Route: 065
  7. ZANTAC [Concomitant]
     Active Substance: RANITIDINE HYDROCHLORIDE
     Indication: GASTROOESOPHAGEAL REFLUX DISEASE
     Dosage: 150 MG, ONCE DAILY BEFORE DINNER
     Route: 065
  8. ASPIRIN. [Concomitant]
     Active Substance: ASPIRIN
     Indication: CARDIAC DISORDER
     Route: 065
  9. PLAVIX [Concomitant]
     Active Substance: CLOPIDOGREL BISULFATE
     Indication: ANTICOAGULANT THERAPY
     Route: 065
  10. COZAAR [Concomitant]
     Active Substance: LOSARTAN POTASSIUM
     Indication: HYPERTENSION
     Dosage: 50 MG, ONCE DAILY AFTER BREAKFAST
     Route: 065
  11. HYTRIN [Concomitant]
     Active Substance: TERAZOSIN HYDROCHLORIDE
     Indication: HYPERTENSION
     Dosage: 2 MG, ONCE DAILY AFTER DINNER
     Route: 065
  12. CARVEDILOL. [Concomitant]
     Active Substance: CARVEDILOL
     Indication: CARDIAC DISORDER
     Dosage: 3.125 MG, TWICE DAILY AFTER BREAKFAST AND DINNER
     Route: 065
  13. ZETIA [Concomitant]
     Active Substance: EZETIMIBE
     Indication: HYPERLIPIDAEMIA
     Dosage: 10 MG, ONCE DAILY AFTER DINNER
     Route: 065
  14. CRESTOR [Concomitant]
     Active Substance: ROSUVASTATIN CALCIUM
     Indication: ANTICOAGULANT THERAPY
     Dosage: 40 MG, ONCE DAILY AFTER BREAKFAST
     Route: 065

REACTIONS (20)
  - Sleep disorder [Recovering/Resolving]
  - Dysphagia [Not Recovered/Not Resolved]
  - Weight decreased [Recovering/Resolving]
  - Myocardial infarction [Recovering/Resolving]
  - Hypoaesthesia [Unknown]
  - Pollakiuria [Unknown]
  - Decreased appetite [Unknown]
  - Product availability issue [Unknown]
  - Muscle spasms [Unknown]
  - Food intolerance [Unknown]
  - Product distribution issue [Unknown]
  - Dysgeusia [Recovering/Resolving]
  - Discouragement [Unknown]
  - Fatigue [Not Recovered/Not Resolved]
  - Deafness unilateral [Unknown]
  - Hypoaesthesia [Not Recovered/Not Resolved]
  - Oesophageal spasm [Unknown]
  - Ageusia [Recovering/Resolving]
  - Syncope [Recovered/Resolved]
  - Depressed mood [Unknown]

NARRATIVE: CASE EVENT DATE: 20180930
